FAERS Safety Report 8795474 (Version 1)
Quarter: 2012Q4

REPORT INFORMATION
  Report Type: 
  Country: SE (occurrence: SE)
  Receive Date: 20120917
  Receipt Date: 20120917
  Transmission Date: 20130627
  Serious: Yes (Hospitalization)
  Sender: FDA-Public Use
  Company Number: SE-PFIZER INC-2012225378

PATIENT
  Age: 74 Year
  Sex: Male
  Weight: 74.5 kg

DRUGS (14)
  1. GENOTROPIN [Suspect]
     Indication: GROWTH HORMONE DEFICIENCY
     Dosage: 0.2 mg, 7/wk
     Route: 058
     Dates: start: 20060202
  2. LEVOTHYROXINE [Concomitant]
     Indication: BLOOD THYROID STIMULATING HORMONE DECREASED
     Dosage: UNK
     Dates: start: 19971001
  3. LEVOTHYROXINE [Concomitant]
     Indication: PRIMARY HYPOTHYROIDISM
  4. TESTOGEL [Concomitant]
     Indication: BLOOD LUTEINISING HORMONE DECREASED
     Dosage: UNK
     Dates: start: 20040929
  5. TESTOGEL [Concomitant]
     Indication: BLOOD FOLLICLE STIMULATING HORMONE DECREASED
  6. TESTOGEL [Concomitant]
     Indication: HYPOGONADISM MALE
  7. BEHEPAN [Concomitant]
     Indication: VITAMIN B COMPLEX DEFICIENCY
     Dosage: UNK
     Dates: start: 20000601
  8. ERCO-FER [Concomitant]
     Indication: MINERAL DEFICIENCY
     Dosage: UNK
     Dates: start: 20000601
  9. FOLACIN [Concomitant]
     Indication: VITAMIN B6 DEFICIENCY
     Dosage: UNK
     Dates: start: 20000601
  10. CORTONE [Concomitant]
     Indication: BLOOD CORTICOTROPHIN DECREASED
     Dosage: UNK
     Dates: start: 20000224
  11. NIFEREX [Concomitant]
     Indication: IRON DEFICIENCY
     Dosage: UNK
     Dates: start: 20030805
  12. WARAN [Concomitant]
     Indication: EMBOLISM
     Dosage: UNK
     Dates: start: 20051130
  13. LANACRIST [Concomitant]
     Dosage: UNK
     Dates: start: 20030805
  14. SPIRONOLACTONE [Concomitant]
     Indication: DIURETIC THERAPY
     Dosage: UNK
     Dates: start: 20051122

REACTIONS (1)
  - Pneumonia [Unknown]
